FAERS Safety Report 23272562 (Version 1)
Quarter: 2023Q4

REPORT INFORMATION
  Report Type: Spontaneous
  Country: US (occurrence: None)
  Receive Date: 20231206
  Receipt Date: 20231206
  Transmission Date: 20240109
  Serious: No
  Sender: FDA-Public Use
  Company Number: None

PATIENT
  Age: 16 Year
  Sex: Female
  Weight: 54 kg

DRUGS (4)
  1. AZSTARYS [Suspect]
     Active Substance: DEXMETHYLPHENIDATE HYDROCHLORIDE\SERDEXMETHYLPHENIDATE CHLORIDE
     Indication: Attention deficit hyperactivity disorder
     Route: 048
  2. ABILIFY [Concomitant]
     Active Substance: ARIPIPRAZOLE
  3. PROZAC [Concomitant]
     Active Substance: FLUOXETINE HYDROCHLORIDE
  4. ADVIL [Concomitant]
     Active Substance: IBUPROFEN

REACTIONS (6)
  - Prescribed overdose [None]
  - Drug ineffective [None]
  - Disturbance in attention [None]
  - Psychomotor hyperactivity [None]
  - Educational problem [None]
  - Poor school attendance [None]

NARRATIVE: CASE EVENT DATE: 20231206
